FAERS Safety Report 5097199-3 (Version None)
Quarter: 2006Q3

REPORT INFORMATION
  Report Type: 
  Country: None (occurrence: None)
  Receive Date: 20060906
  Receipt Date: 20060208
  Transmission Date: 20061208
  Serious: Yes (Other)
  Sender: FDA-Public Use
  Company Number: US-BAYER-200610754BWH

PATIENT

DRUGS (1)
  1. NEXAVAR [Suspect]
     Indication: UNEVALUABLE EVENT
     Route: 048

REACTIONS (2)
  - RASH [None]
  - RENAL FAILURE [None]
